FAERS Safety Report 5103960-9 (Version None)
Quarter: 2006Q3

REPORT INFORMATION
  Report Type: 
  Country: None (occurrence: None)
  Receive Date: 20060908
  Receipt Date: 20060823
  Transmission Date: 20061208
  Serious: Yes (Life-Threatening, Other)
  Sender: FDA-Public Use
  Company Number: 2982

PATIENT
  Age: 14 Year
  Sex: Female

DRUGS (2)
  1. AMNESTEEM [Suspect]
     Indication: ACNE
     Dosage: 40 MG, QD; ORAL; 40 MG, TWICE A DAY; ORAL
     Route: 048
     Dates: start: 20060206, end: 20060314
  2. AMNESTEEM [Suspect]
     Indication: ACNE
     Dosage: 40 MG, QD; ORAL; 40 MG, TWICE A DAY; ORAL
     Route: 048
     Dates: start: 20060314, end: 20060403

REACTIONS (3)
  - ABNORMAL BEHAVIOUR [None]
  - DEPRESSION [None]
  - SUICIDAL BEHAVIOUR [None]
